FAERS Safety Report 8583791-8 (Version None)
Quarter: 2012Q3

REPORT INFORMATION
  Report Type: 
  Country: None (occurrence: None)
  Receive Date: 20120810
  Receipt Date: 20120730
  Transmission Date: 20120928
  Serious: Yes (Hospitalization)
  Sender: FDA-Public Use
  Company Number: US-009507513-1208USA000075

PATIENT

DRUGS (5)
  1. REBETOL [Suspect]
     Indication: HEPATITIS C
     Dosage: 200MG IN PM, 400MG IN AM
     Route: 048
     Dates: start: 20120413, end: 20120530
  2. REBETOL [Suspect]
     Dosage: 200 MG, QD
     Route: 048
     Dates: start: 20120530, end: 20120711
  3. PEGASYS [Suspect]
     Indication: HEPATITIS C
     Dosage: 135 MICROGRAM, UNK
     Route: 058
     Dates: start: 20120413, end: 20120530
  4. PEGASYS [Suspect]
     Dosage: 90 MICROGRAM, QW
     Route: 058
     Dates: start: 20120530, end: 20120711
  5. VICTRELIS [Concomitant]
     Dosage: UNKNOWN
     Route: 048

REACTIONS (2)
  - THROMBOCYTOPENIA [None]
  - ANAEMIA [None]
